FAERS Safety Report 4935358-8 (Version None)
Quarter: 2006Q1

REPORT INFORMATION
  Report Type: 
  Country: None (occurrence: None)
  Receive Date: 20060307
  Receipt Date: 20050715
  Transmission Date: 20060701
  Serious: No
  Sender: FDA-Public Use
  Company Number: US-GLAXOSMITHKLINE-A0566459A

PATIENT
  Age: 45 Year
  Sex: Female
  Weight: 95.5 kg

DRUGS (9)
  1. REQUIP [Suspect]
     Indication: RESTLESS LEGS SYNDROME
     Dosage: .25MG AT NIGHT
     Route: 048
     Dates: start: 20050713
  2. CYMBALTA [Concomitant]
     Route: 048
  3. PERCOCET [Concomitant]
     Route: 048
  4. ORTHO-EST [Concomitant]
     Route: 048
  5. DILTIAZEM [Concomitant]
     Route: 048
  6. DIOVAN [Concomitant]
     Route: 048
  7. DURAGESIC-100 [Concomitant]
     Route: 061
  8. MIRAPEX [Concomitant]
     Route: 048
     Dates: end: 20050711
  9. KLONOPIN [Concomitant]
     Route: 048
     Dates: end: 20050711

REACTIONS (1)
  - NIGHTMARE [None]
